FAERS Safety Report 6738518-9 (Version None)
Quarter: 2010Q2

REPORT INFORMATION
  Report Type: 
  Country: None (occurrence: None)
  Receive Date: 20100524
  Receipt Date: 20100519
  Transmission Date: 20101027
  Serious: Yes (Other)
  Sender: FDA-Public Use
  Company Number: PHHY2010JP20699

PATIENT
  Sex: Female
  Weight: 50 kg

DRUGS (6)
  1. DIOVAN [Suspect]
     Indication: HYPERTENSION
     Dosage: 80 MG, QD
     Route: 048
     Dates: start: 20060401, end: 20060426
  2. ADALAT CC [Concomitant]
     Indication: HYPERTENSION
     Route: 048
  3. FLUITRAN [Concomitant]
     Indication: HYPERTENSION
     Route: 048
     Dates: end: 20100426
  4. RENIVACE [Concomitant]
     Indication: HYPERTENSION
     Route: 048
     Dates: start: 20051013
  5. ALMARL [Concomitant]
     Indication: HYPERTENSION
     Route: 048
     Dates: start: 20061019
  6. THYRADIN [Concomitant]
     Indication: HYPOTHYROIDISM
     Route: 048
     Dates: start: 20090205

REACTIONS (1)
  - OEDEMA PERIPHERAL [None]
